FAERS Safety Report 8934999 (Version 1)
Quarter: 2012Q4

REPORT INFORMATION
  Report Type: 
  Country: US (occurrence: US)
  Receive Date: 20121129
  Receipt Date: 20121129
  Transmission Date: 20130627
  Serious: No
  Sender: FDA-Public Use
  Company Number: US-ASTRAZENECA-2012SE87601

PATIENT
  Sex: Female

DRUGS (1)
  1. ANASTROZOLE [Suspect]
     Indication: BREAST CANCER METASTATIC
     Route: 048
     Dates: start: 201202, end: 201205

REACTIONS (2)
  - Adverse drug reaction [Unknown]
  - Pain [Unknown]
